FAERS Safety Report 8493010-9 (Version None)
Quarter: 2012Q3

REPORT INFORMATION
  Report Type: 
  Country: None (occurrence: None)
  Receive Date: 20120706
  Receipt Date: 20120702
  Transmission Date: 20120928
  Serious: Yes (Other)
  Sender: FDA-Public Use
  Company Number: US-TEVA-346358USA

PATIENT
  Age: 60 Year
  Sex: Female

DRUGS (1)
  1. COPAXONE [Suspect]
     Indication: MULTIPLE SCLEROSIS
     Dates: start: 20000101

REACTIONS (5)
  - LOSS OF CONSCIOUSNESS [None]
  - FALL [None]
  - CONTUSION [None]
  - CONVULSION [None]
  - INJECTION SITE INDURATION [None]
